FAERS Safety Report 5322100-4 (Version None)
Quarter: 2007Q2

REPORT INFORMATION
  Report Type: 
  Country: None (occurrence: None)
  Receive Date: 20070511
  Receipt Date: 20070507
  Transmission Date: 20071010
  Serious: Yes (Other)
  Sender: FDA-Public Use
  Company Number: US-BAYER-200711423BCC

PATIENT
  Age: 65 Year
  Sex: Female
  Weight: 66 kg

DRUGS (4)
  1. ALKA SELTZER EFFERVESCENT PLUS COLD + COUGH [Suspect]
     Indication: NASOPHARYNGITIS
     Route: 048
     Dates: start: 20070301
  2. ACTONEL [Concomitant]
     Indication: NASOPHARYNGITIS
  3. CELEBREX [Concomitant]
  4. LISINO HCTZ [Concomitant]

REACTIONS (2)
  - GASTROINTESTINAL ULCER [None]
  - RECTAL HAEMORRHAGE [None]
